FAERS Safety Report 8401717-4 (Version None)
Quarter: 2012Q2

REPORT INFORMATION
  Report Type: 
  Country: None (occurrence: None)
  Receive Date: 20120601
  Receipt Date: 20120524
  Transmission Date: 20120825
  Serious: Yes (Hospitalization)
  Sender: FDA-Public Use
  Company Number: US-BAYER-2012-044452

PATIENT
  Age: 29 Year
  Sex: Female
  Weight: 75 kg

DRUGS (5)
  1. RELPAX [Concomitant]
     Indication: MIGRAINE
     Dosage: 20 MG, PRN
     Dates: start: 20070101
  2. YAZ [Suspect]
     Indication: PREMENSTRUAL SYNDROME
     Dosage: UNK
     Dates: start: 20061127, end: 20091213
  3. ACETAMINOPHEN [Concomitant]
  4. YAZ [Suspect]
     Indication: MENSTRUAL CYCLE MANAGEMENT
  5. CLINDESSE [Concomitant]

REACTIONS (5)
  - PULMONARY EMBOLISM [None]
  - CHEST PAIN [None]
  - EFFUSION [None]
  - DEEP VEIN THROMBOSIS [None]
  - PAIN [None]
